FAERS Safety Report 23464657 (Version 2)
Quarter: 2024Q1

REPORT INFORMATION
  Report Type: Report from Study
  Country: US (occurrence: US)
  Receive Date: 20240201
  Receipt Date: 20240219
  Transmission Date: 20240410
  Serious: Yes (Hospitalization)
  Sender: FDA-Public Use
  Company Number: US-TAKEDA-2024TUS008370

PATIENT
  Sex: Female

DRUGS (4)
  1. TEDUGLUTIDE [Suspect]
     Active Substance: TEDUGLUTIDE
     Indication: Product used for unknown indication
     Dosage: 0.377 MILLILITER, QD
     Route: 058
     Dates: start: 20220716
  2. TEDUGLUTIDE [Suspect]
     Active Substance: TEDUGLUTIDE
     Indication: Product used for unknown indication
     Dosage: 0.377 MILLILITER, QD
     Route: 058
     Dates: start: 20220716
  3. TEDUGLUTIDE [Suspect]
     Active Substance: TEDUGLUTIDE
     Indication: Product used for unknown indication
     Dosage: 0.377 MILLILITER, QD
     Route: 058
     Dates: start: 20220716
  4. TEDUGLUTIDE [Suspect]
     Active Substance: TEDUGLUTIDE
     Indication: Product used for unknown indication
     Dosage: 0.377 MILLILITER, QD
     Route: 058
     Dates: start: 20220716

REACTIONS (4)
  - Injury [Unknown]
  - Vomiting [Unknown]
  - Abdominal pain [Unknown]
  - Inability to afford medication [Unknown]
